FAERS Safety Report 6278056-3 (Version None)
Quarter: 2009Q3

REPORT INFORMATION
  Report Type: 
  Country: None (occurrence: None)
  Receive Date: 20090722
  Receipt Date: 20090713
  Transmission Date: 20100115
  Serious: Yes (Other)
  Sender: FDA-Public Use
  Company Number: PHHY2009JP24411

PATIENT
  Sex: Female
  Weight: 42 kg

DRUGS (6)
  1. NEORAL [Suspect]
     Indication: ALLOGENIC BONE MARROW TRANSPLANTATION THERAPY
     Dosage: 40 MG, BID
     Route: 048
     Dates: start: 20080320, end: 20081001
  2. PREDNISOLONE [Suspect]
     Indication: ALLOGENIC BONE MARROW TRANSPLANTATION THERAPY
     Dosage: 20 MG, QD
     Route: 048
     Dates: start: 20080723, end: 20081119
  3. METHOTREXATE [Concomitant]
     Indication: ALLOGENIC BONE MARROW TRANSPLANTATION THERAPY
     Dosage: UNK
     Dates: start: 20080301
  4. BUSULFAN [Concomitant]
     Indication: ALLOGENIC BONE MARROW TRANSPLANTATION THERAPY
  5. CYCLOPHOSPHAMIDE [Concomitant]
     Indication: ALLOGENIC BONE MARROW TRANSPLANTATION THERAPY
  6. FLUCONAZOLE [Concomitant]
     Indication: INFECTION PROPHYLAXIS
     Dosage: 200 MG
     Route: 048
     Dates: start: 20080305, end: 20081001

REACTIONS (10)
  - ACUTE GRAFT VERSUS HOST DISEASE IN SKIN [None]
  - CHRONIC GRAFT VERSUS HOST DISEASE [None]
  - HEADACHE [None]
  - INFLAMMATION [None]
  - INTRACRANIAL VENOUS SINUS THROMBOSIS [None]
  - NAUSEA [None]
  - PLATELET COUNT DECREASED [None]
  - RASH [None]
  - STOMATITIS [None]
  - VOMITING [None]
